FAERS Safety Report 5044786-4 (Version None)
Quarter: 2006Q3

REPORT INFORMATION
  Report Type: 
  Country: None (occurrence: None)
  Receive Date: 20060707
  Receipt Date: 20060615
  Transmission Date: 20061208
  Serious: Yes (Hospitalization)
  Sender: FDA-Public Use
  Company Number: ITWYE733415JUN06

PATIENT
  Sex: Male

DRUGS (1)
  1. ENBREL [Suspect]
     Indication: PSORIASIS
     Route: 058
     Dates: start: 20060322, end: 20060522

REACTIONS (3)
  - DISEASE PROGRESSION [None]
  - FUSARIUM INFECTION [None]
  - PUSTULAR PSORIASIS [None]
